FAERS Safety Report 19722715 (Version 1)
Quarter: 2021Q3

REPORT INFORMATION
  Report Type: Spontaneous
  Country: US (occurrence: US)
  Receive Date: 20210819
  Receipt Date: 20210819
  Transmission Date: 20211014
  Serious: No
  Sender: FDA-Public Use
  Company Number: US-EISAI MEDICAL RESEARCH-EC-2021-097632

PATIENT
  Sex: Male

DRUGS (2)
  1. LENVIMA [Suspect]
     Active Substance: LENVATINIB
     Dosage: DOSAGE AND FREQUENCY UNKNOWN; DOSE REDUCED
     Route: 048
  2. LENVIMA [Suspect]
     Active Substance: LENVATINIB
     Indication: GASTRINOMA
     Dosage: DOSAGE AND FREQUENCY UNKNOWN
     Route: 048

REACTIONS (3)
  - Thyroxine free decreased [Unknown]
  - Tri-iodothyronine free decreased [Unknown]
  - Blood thyroid stimulating hormone increased [Unknown]
